FAERS Safety Report 12563050 (Version 1)
Quarter: 2016Q3

REPORT INFORMATION
  Report Type: Spontaneous
  Country: BR (occurrence: BR)
  Receive Date: 20160715
  Receipt Date: 20160715
  Transmission Date: 20161109
  Serious: Yes (Other)
  Sender: FDA-Public Use
  Company Number: BR-PFIZER INC-2015432857

PATIENT
  Age: 74 Year
  Sex: Female
  Weight: 56 kg

DRUGS (9)
  1. SINVASTACOR [Concomitant]
     Active Substance: SIMVASTATIN
  2. CELEBRA [Suspect]
     Active Substance: CELECOXIB
     Indication: JOINT EFFUSION
  3. CELEBRA [Suspect]
     Active Substance: CELECOXIB
     Indication: CYST
  4. SERTRALINE [Concomitant]
     Active Substance: SERTRALINE HYDROCHLORIDE
  5. ARTROLIVE [Concomitant]
     Active Substance: CHONDROITIN SULFATE (BOVINE)\GLUCOSAMINE SULFATE
  6. DIAZEPAM. [Concomitant]
     Active Substance: DIAZEPAM
  7. CELEBRA [Suspect]
     Active Substance: CELECOXIB
     Indication: ARTHRALGIA
     Dosage: UNK, 1X/DAY
     Route: 048
     Dates: start: 20151026
  8. OMEPRAZOLE. [Concomitant]
     Active Substance: OMEPRAZOLE
     Indication: DIVERTICULITIS
     Dosage: UNK
  9. LOSARTAN. [Concomitant]
     Active Substance: LOSARTAN

REACTIONS (15)
  - Fatigue [Unknown]
  - Blood glucose increased [Not Recovered/Not Resolved]
  - Hypoacusis [Unknown]
  - Condition aggravated [Unknown]
  - Rheumatic disorder [Unknown]
  - Gastric polyps [Unknown]
  - Benign uterine neoplasm [Unknown]
  - Spinal disorder [Unknown]
  - Arthralgia [Unknown]
  - Pain in extremity [Unknown]
  - Asthenia [Unknown]
  - Depression [Not Recovered/Not Resolved]
  - Osteoporosis [Unknown]
  - Somnolence [Unknown]
  - Abdominal pain [Not Recovered/Not Resolved]

NARRATIVE: CASE EVENT DATE: 20151216
